FAERS Safety Report 6262886-8 (Version None)
Quarter: 2009Q3

REPORT INFORMATION
  Report Type: 
  Country: None (occurrence: None)
  Receive Date: 20090709
  Receipt Date: 20090701
  Transmission Date: 20100115
  Serious: Yes (Other)
  Sender: FDA-Public Use
  Company Number: GB-ABBOTT-09P-167-0583051-00

PATIENT
  Sex: Female

DRUGS (1)
  1. PROSTAP SR [Suspect]
     Indication: ENDOMETRIOSIS
     Route: 058

REACTIONS (1)
  - INJECTION SITE NODULE [None]
